FAERS Safety Report 23447298 (Version 1)
Quarter: 2024Q1

REPORT INFORMATION
  Report Type: Spontaneous
  Country: FR (occurrence: None)
  Receive Date: 20240126
  Receipt Date: 20240126
  Transmission Date: 20240410
  Serious: Yes (Other)
  Sender: FDA-Public Use
  Company Number: 2024A020516

PATIENT

DRUGS (1)
  1. BEYFORTUS [Suspect]
     Active Substance: NIRSEVIMAB-ALIP
     Dosage: UNK UNK, TOTAL

REACTIONS (2)
  - Respiratory syncytial virus bronchiolitis [Unknown]
  - Product administered to patient of inappropriate age [Unknown]
